FAERS Safety Report 4943870-0 (Version None)
Quarter: 2006Q1

REPORT INFORMATION
  Report Type: 
  Country: None (occurrence: None)
  Receive Date: 20060310
  Receipt Date: 20060223
  Transmission Date: 20060701
  Serious: Yes (Other)
  Sender: FDA-Public Use
  Company Number: GBWYE429626FEB06

PATIENT
  Age: 72 Year
  Sex: Male

DRUGS (1)
  1. EFFEXOR [Suspect]
     Indication: DEPRESSION
     Dosage: 75 MG
     Route: 048
     Dates: start: 20030701, end: 20051204

REACTIONS (2)
  - ATRIAL CONDUCTION TIME PROLONGATION [None]
  - SUPRAVENTRICULAR EXTRASYSTOLES [None]
